FAERS Safety Report 16712498 (Version 2)
Quarter: 2019Q3

REPORT INFORMATION
  Report Type: Report from Study
  Country: US (occurrence: US)
  Receive Date: 20190816
  Receipt Date: 20190923
  Transmission Date: 20191004
  Serious: Yes (Death, Hospitalization)
  Sender: FDA-Public Use
  Company Number: US-EXELIXIS-CABO-19021948

PATIENT
  Age: 75 Year
  Sex: Female

DRUGS (4)
  1. CABOMETYX [Suspect]
     Active Substance: CABOZANTINIB S-MALATE
     Dosage: 40 MG, QHS W/O FOOD
     Dates: start: 20190628, end: 201907
  2. CABOMETYX [Suspect]
     Active Substance: CABOZANTINIB S-MALATE
     Dosage: 40 MG, QHS W/O FOOD
     Dates: start: 201908
  3. CABOMETYX [Suspect]
     Active Substance: CABOZANTINIB S-MALATE
     Indication: ACUTE MYELOID LEUKAEMIA
     Dosage: 60 MG, QD
     Dates: start: 20190530
  4. PAXIL [Concomitant]
     Active Substance: PAROXETINE HYDROCHLORIDE

REACTIONS (14)
  - Rash [Recovering/Resolving]
  - Hip fracture [Unknown]
  - Fluid intake reduced [Unknown]
  - Fall [Unknown]
  - Lethargy [Recovering/Resolving]
  - Platelet count abnormal [Unknown]
  - Off label use [Unknown]
  - Red blood cell count abnormal [Unknown]
  - White blood cell disorder [Unknown]
  - Confusional state [Unknown]
  - Haemoglobin decreased [Unknown]
  - Haematocrit decreased [Unknown]
  - Asthenia [Unknown]
  - Death [Fatal]

NARRATIVE: CASE EVENT DATE: 201907
